FAERS Safety Report 7020713-5 (Version None)
Quarter: 2010Q3

REPORT INFORMATION
  Report Type: 
  Country: None (occurrence: None)
  Receive Date: 20100929
  Receipt Date: 20100923
  Transmission Date: 20110219
  Serious: Yes (Hospitalization)
  Sender: FDA-Public Use
  Company Number: PHHO2010DE09539

PATIENT
  Sex: Female
  Weight: 54 kg

DRUGS (15)
  1. TASIGNA [Suspect]
     Indication: ACUTE MYELOID LEUKAEMIA
     Dosage: 800 MG, QD
     Route: 048
     Dates: start: 20100510, end: 20100619
  2. TASIGNA [Suspect]
     Dosage: UNK
     Route: 048
     Dates: start: 20100713
  3. AFINITOR [Suspect]
     Indication: ACUTE MYELOID LEUKAEMIA
     Dosage: 5MG PER DAY
     Route: 048
     Dates: start: 20100530
  4. AFINITOR [Suspect]
     Dosage: UNK
  5. DECORTIN-H [Suspect]
  6. CEFUROXIME [Concomitant]
  7. PANTOPRAZOLE SODIUM [Concomitant]
  8. GLUCOBAY [Concomitant]
  9. RAMIPRIL [Concomitant]
  10. CONCOR [Concomitant]
  11. SEROQUEL [Concomitant]
  12. HYDROCHLOROTHIAZIDE [Concomitant]
  13. NORVASC [Concomitant]
  14. LANTUS [Concomitant]
  15. VITAMIN D3 [Concomitant]

REACTIONS (7)
  - ANAEMIA [None]
  - FEBRILE NEUTROPENIA [None]
  - GASTROINTESTINAL INFECTION [None]
  - GENERAL PHYSICAL HEALTH DETERIORATION [None]
  - PNEUMONIA [None]
  - PYREXIA [None]
  - RENAL FAILURE [None]
